FAERS Safety Report 10072802 (Version 1)
Quarter: 2014Q2

REPORT INFORMATION
  Report Type: Spontaneous
  Country: FR (occurrence: FR)
  Receive Date: 20140411
  Receipt Date: 20140411
  Transmission Date: 20141212
  Serious: Yes (Hospitalization)
  Sender: FDA-Public Use
  Company Number: FR-SA-2014SA040407

PATIENT
  Age: 88 Year
  Sex: Female

DRUGS (9)
  1. ENDOTELON [Suspect]
     Indication: PRODUCT USED FOR UNKNOWN INDICATION
     Dosage: DOSE:2 UNIT(S)
     Route: 048
     Dates: end: 20131227
  2. RILMENIDINE [Suspect]
     Indication: PRODUCT USED FOR UNKNOWN INDICATION
     Dosage: DOSE:1 UNIT(S)
     Route: 048
     Dates: end: 20131227
  3. LASILIX [Suspect]
     Indication: PRODUCT USED FOR UNKNOWN INDICATION
     Dosage: DOSE:1 UNIT(S)
     Route: 048
  4. SIFROL [Suspect]
     Indication: PRODUCT USED FOR UNKNOWN INDICATION
     Dosage: DOSE:1 UNIT(S)
     Route: 048
     Dates: end: 20131227
  5. SEROPLEX [Suspect]
     Indication: PRODUCT USED FOR UNKNOWN INDICATION
     Dosage: DOSE:1 UNIT(S)
     Route: 048
     Dates: end: 20131227
  6. PREVISCAN [Concomitant]
     Route: 048
  7. METFORMIN [Concomitant]
     Route: 048
  8. ATENOLOL [Concomitant]
     Route: 048
  9. ZOPICLONE [Concomitant]
     Route: 048

REACTIONS (1)
  - Oedema peripheral [Recovered/Resolved]
